FAERS Safety Report 18209470 (Version 3)
Quarter: 2022Q3

REPORT INFORMATION
  Report Type: Spontaneous
  Country: SE (occurrence: SE)
  Receive Date: 20200828
  Receipt Date: 20220714
  Transmission Date: 20221027
  Serious: Yes (Hospitalization, Other)
  Sender: FDA-Public Use
  Company Number: SE-SA-2020SA227662

PATIENT
  Sex: Male

DRUGS (3)
  1. TOUJEO [Suspect]
     Active Substance: INSULIN GLARGINE
     Indication: Diabetes mellitus
     Dosage: 28 IU
     Route: 065
     Dates: start: 2005
  2. TOUJEO [Suspect]
     Active Substance: INSULIN GLARGINE
     Dosage: 18-20 UNITS
     Route: 065
     Dates: start: 2005
  3. INSULIN GLARGINE [Suspect]
     Active Substance: INSULIN GLARGINE
     Dosage: UNK
     Route: 065

REACTIONS (5)
  - Cerebrovascular accident [Recovered/Resolved]
  - Cerebrovascular accident [Unknown]
  - Blood glucose increased [Unknown]
  - Blood glucose decreased [Unknown]
  - Off label use [Unknown]

NARRATIVE: CASE EVENT DATE: 20050101
